FAERS Safety Report 5909025-8 (Version None)
Quarter: 2008Q4

REPORT INFORMATION
  Report Type: 
  Country: None (occurrence: None)
  Receive Date: 20081006
  Receipt Date: 20080922
  Transmission Date: 20090506
  Serious: Yes (Hospitalization, Other)
  Sender: FDA-Public Use
  Company Number: US-ROCHE-587566

PATIENT
  Age: 65 Year
  Sex: Female

DRUGS (11)
  1. MYCOPHENOLATE MOFETIL [Suspect]
     Route: 065
  2. MYCOPHENOLATE MOFETIL [Suspect]
     Route: 065
  3. VALGANCICLOVIR HCL [Suspect]
     Route: 065
  4. RITUXIMAB [Suspect]
     Indication: EPSTEIN-BARR VIRUS ASSOCIATED LYMPHOPROLIFERATIVE DISORDER
     Route: 042
  5. THYMOGLOBULIN [Suspect]
     Indication: IMMUNOSUPPRESSANT DRUG THERAPY
     Dosage: 100 MG X 3 AND 50 MG X 5.
     Route: 065
  6. PREDNISONE TAB [Suspect]
     Route: 065
  7. CYCLOSPORINE [Suspect]
     Dosage: 75 MG AM, 50 MG PM
     Route: 065
  8. SIROLIMUS [Concomitant]
  9. SIROLIMUS [Concomitant]
  10. ACYCLOVIR [Concomitant]
     Indication: EPSTEIN-BARR VIRUS ASSOCIATED LYMPHOPROLIFERATIVE DISORDER
     Route: 048
  11. ANTIHYPERTENSIVE NOS [Concomitant]
     Indication: HYPERTENSION

REACTIONS (5)
  - BLOOD CREATININE INCREASED [None]
  - CANDIDA PNEUMONIA [None]
  - EPSTEIN-BARR VIRUS ASSOCIATED LYMPHOPROLIFERATIVE DISORDER [None]
  - TRANSPLANT REJECTION [None]
  - WOUND [None]
